FAERS Safety Report 11165413 (Version 7)
Quarter: 2016Q3

REPORT INFORMATION
  Report Type: Spontaneous
  Country: US (occurrence: US)
  Receive Date: 20150604
  Receipt Date: 20160805
  Transmission Date: 20161109
  Serious: Yes (Hospitalization, Disabling, Other)
  Sender: FDA-Public Use
  Company Number: US-MERCK-1506USA002058

PATIENT
  Sex: Female

DRUGS (5)
  1. BONIVA [Suspect]
     Active Substance: IBANDRONATE SODIUM
     Indication: OSTEOPOROSIS
     Dosage: 150 MG, QM
     Route: 048
     Dates: start: 200709, end: 201002
  2. FOSAMAX [Suspect]
     Active Substance: ALENDRONATE SODIUM
     Indication: OSTEOPOROSIS
     Dosage: 70 MG, QW
     Route: 048
     Dates: start: 2002, end: 200708
  3. ACTONEL [Suspect]
     Active Substance: RISEDRONATE SODIUM
     Indication: OSTEOPOROSIS
     Dosage: 150 MG, QM
     Route: 048
     Dates: start: 201003, end: 201008
  4. FOSAMAX [Suspect]
     Active Substance: ALENDRONATE SODIUM
     Indication: OSTEOPENIA
  5. ALENDRONATE SODIUM. [Suspect]
     Active Substance: ALENDRONATE SODIUM
     Indication: OSTEOPOROSIS
     Dosage: 70 MG, QW
     Route: 048
     Dates: start: 201009, end: 201208

REACTIONS (35)
  - Diverticulum [Unknown]
  - Post herpetic neuralgia [Unknown]
  - Breast cancer [Unknown]
  - Anaemia [Unknown]
  - Bone disorder [Unknown]
  - Osteoarthritis [Unknown]
  - Muscle spasms [Unknown]
  - Hysterectomy [Unknown]
  - Osteoarthritis [Unknown]
  - Chest pain [Unknown]
  - Low turnover osteopathy [Not Recovered/Not Resolved]
  - Arthralgia [Unknown]
  - Femur fracture [Recovering/Resolving]
  - Sciatica [Unknown]
  - Anxiety [Not Recovered/Not Resolved]
  - Fall [Unknown]
  - Anxiety disorder [Unknown]
  - Gingival disorder [Unknown]
  - Hyperlipidaemia [Unknown]
  - Pleural effusion [Unknown]
  - Blood potassium abnormal [Unknown]
  - Device loosening [Unknown]
  - Femur fracture [Recovered/Resolved]
  - Depression [Not Recovered/Not Resolved]
  - Wound complication [Unknown]
  - Medical device pain [Unknown]
  - Nausea [Unknown]
  - Dyspepsia [Unknown]
  - Osteonecrosis [Unknown]
  - Spinal column stenosis [Unknown]
  - Limb asymmetry [Unknown]
  - Depression [Not Recovered/Not Resolved]
  - Gastrooesophageal reflux disease [Unknown]
  - Joint dislocation [Unknown]
  - Atelectasis [Unknown]

NARRATIVE: CASE EVENT DATE: 2003
